FAERS Safety Report 15391223 (Version 1)
Quarter: 2018Q4

REPORT INFORMATION
  Report Type: Spontaneous
  Country: FR (occurrence: FR)
  Receive Date: 20180917
  Receipt Date: 20180917
  Transmission Date: 20190204
  Serious: Yes (Hospitalization)
  Sender: FDA-Public Use
  Company Number: FR-009507513-2011SP055515

PATIENT
  Age: 54 Year
  Sex: Female

DRUGS (5)
  1. TEMESTA (LORAZEPAM) [Suspect]
     Active Substance: LORAZEPAM
     Indication: DEPRESSION
  2. NORSET [Suspect]
     Active Substance: MIRTAZAPINE
     Indication: DEPRESSION
  3. TERCIAN [Suspect]
     Active Substance: CYAMEMAZINE
     Indication: ANXIETY
     Dosage: 75 MG, QD
     Route: 048
     Dates: start: 200904
  4. TEMESTA (LORAZEPAM) [Suspect]
     Active Substance: LORAZEPAM
     Indication: DEPRESSION
     Dosage: 3 MG, QD
     Route: 048
     Dates: start: 201105
  5. NORSET [Suspect]
     Active Substance: MIRTAZAPINE
     Indication: DEPRESSION
     Dosage: 15 MG, QD
     Route: 048
     Dates: start: 201105

REACTIONS (2)
  - Thyroid mass [Unknown]
  - Jugular vein thrombosis [Recovering/Resolving]

NARRATIVE: CASE EVENT DATE: 201107
